FAERS Safety Report 7323151-0 (Version None)
Quarter: 2011Q1

REPORT INFORMATION
  Report Type: 
  Country: None (occurrence: None)
  Receive Date: 20110216
  Receipt Date: 20110202
  Transmission Date: 20110831
  Serious: Yes (Hospitalization, Other)
  Sender: FDA-Public Use
  Company Number: UTC-005073

PATIENT
  Age: 53 Year
  Sex: Male
  Weight: 139.3 kg

DRUGS (12)
  1. DIGOXIN [Concomitant]
  2. CALCIUM (CALCIUM) [Concomitant]
  3. COUMADIN [Concomitant]
  4. TRACLEER [Concomitant]
  5. LASIX [Concomitant]
  6. TYVASO [Suspect]
  7. DIURETICS (DIURETICS) [Concomitant]
  8. NORVASC [Concomitant]
  9. POTASSIUM (POTASSIUM) [Concomitant]
  10. TYVASO [Suspect]
     Indication: COR PULMONALE CHRONIC
     Dosage: 216 MCG (54 MCG,4 IN 1 D),INHALATION
     Route: 055
     Dates: start: 20101220, end: 20110213
  11. SONATA (ZALEPRON) [Concomitant]
  12. PRINIVIL [Concomitant]

REACTIONS (11)
  - ABDOMINAL DISTENSION [None]
  - DEHYDRATION [None]
  - ANAEMIA [None]
  - MUSCULOSKELETAL CHEST PAIN [None]
  - COUGH [None]
  - PROTHROMBIN TIME PROLONGED [None]
  - SPLENOMEGALY [None]
  - CARDIAC FAILURE [None]
  - HYPOTENSION [None]
  - OEDEMA PERIPHERAL [None]
  - URINE OUTPUT DECREASED [None]
